FAERS Safety Report 23613744 (Version 1)
Quarter: 2024Q1

REPORT INFORMATION
  Report Type: Spontaneous
  Country: US (occurrence: US)
  Receive Date: 20240309
  Receipt Date: 20240309
  Transmission Date: 20240410
  Serious: Yes (Life-Threatening)
  Sender: FDA-Public Use
  Company Number: US-i-Health, Inc.-2154207

PATIENT
  Age: 66 Year
  Sex: Female
  Weight: 80.455 kg

DRUGS (2)
  1. AZO URINARY PAIN RELIEF [Suspect]
     Active Substance: PHENAZOPYRIDINE HYDROCHLORIDE
     Dates: start: 20240215, end: 20240215
  2. ALLEGRA [Concomitant]
     Active Substance: FEXOFENADINE HYDROCHLORIDE

REACTIONS (1)
  - Hypersensitivity [Recovering/Resolving]

NARRATIVE: CASE EVENT DATE: 20240215
